FAERS Safety Report 21450215 (Version 7)
Quarter: 2023Q2

REPORT INFORMATION
  Report Type: Spontaneous
  Country: GB (occurrence: GB)
  Receive Date: 20221013
  Receipt Date: 20230622
  Transmission Date: 20230721
  Serious: Yes (Other)
  Sender: FDA-Public Use
  Company Number: GB-MYLANLABS-2022M1113234

PATIENT
  Age: 40 Year
  Sex: Female
  Weight: 78.2 kg

DRUGS (6)
  1. CLOZARIL [Suspect]
     Active Substance: CLOZAPINE
     Indication: Schizophrenia
     Dosage: 400 MILLIGRAM, QD, (100 MG OM AND 300 MG ON)
     Route: 048
     Dates: start: 20140811
  2. CLOZARIL [Suspect]
     Active Substance: CLOZAPINE
     Dosage: UNK, (LOWER DOSE)
     Route: 048
     Dates: start: 20221019
  3. FLUOXETINE [Concomitant]
     Active Substance: FLUOXETINE HYDROCHLORIDE
     Dosage: 20 MILLIGRAM, QD
     Route: 048
  4. ESTRADIOL VALERATE [Concomitant]
     Active Substance: ESTRADIOL VALERATE
     Dosage: 2 MILLIGRAM, QD
     Route: 048
  5. ATENOLOL [Concomitant]
     Active Substance: ATENOLOL
     Dosage: 25 MILLIGRAM, QD
     Route: 048
  6. SCOPOLAMINE HYDROBROMIDE [Concomitant]
     Active Substance: SCOPOLAMINE HYDROBROMIDE
     Dosage: 600 MILLIGRAM, QD
     Route: 048

REACTIONS (5)
  - Schizophrenia [Unknown]
  - Eosinophilia [Recovered/Resolved]
  - Differential white blood cell count abnormal [Unknown]
  - White blood cell count increased [Unknown]
  - Eosinophil count decreased [Not Recovered/Not Resolved]

NARRATIVE: CASE EVENT DATE: 20221006
